FAERS Safety Report 4758397-9 (Version None)
Quarter: 2005Q3

REPORT INFORMATION
  Report Type: 
  Country: None (occurrence: None)
  Receive Date: 20050826
  Receipt Date: 20050523
  Transmission Date: 20060218
  Serious: Yes (Hospitalization, Other)
  Sender: FDA-Public Use
  Company Number: WAES 0502USA02064

PATIENT
  Age: 42 Year
  Sex: Female
  Weight: 120.2032 kg

DRUGS (1)
  1. ZETIA [Suspect]
     Indication: HYPERLIPIDAEMIA
     Dosage: 10 MG/DAILY/PO
     Route: 048

REACTIONS (2)
  - MUSCLE ENZYME INCREASED [None]
  - MYALGIA [None]
